FAERS Safety Report 6840579-3 (Version None)
Quarter: 2010Q3

REPORT INFORMATION
  Report Type: 
  Country: None (occurrence: None)
  Receive Date: 20100714
  Receipt Date: 20100705
  Transmission Date: 20110219
  Serious: Yes (Hospitalization)
  Sender: FDA-Public Use
  Company Number: B0649775A

PATIENT
  Sex: Female
  Weight: 69 kg

DRUGS (1)
  1. GW786034 [Suspect]
     Indication: SARCOMA
     Route: 048
     Dates: start: 20051219, end: 20060612

REACTIONS (2)
  - DYSPNOEA [None]
  - PULMONARY EMBOLISM [None]
